FAERS Safety Report 10004428 (Version 1)
Quarter: 2014Q1

REPORT INFORMATION
  Report Type: Spontaneous
  Country: GB (occurrence: GB)
  Receive Date: 20140312
  Receipt Date: 20140312
  Transmission Date: 20141002
  Serious: Yes (Other)
  Sender: FDA-Public Use
  Company Number: GB-MYLANLABS-2014S1004611

PATIENT
  Age: 65 Year
  Sex: Male
  Weight: 112 kg

DRUGS (9)
  1. DOXAZOSIN [Suspect]
     Indication: HYPERTENSION
     Route: 048
     Dates: start: 201310, end: 20140122
  2. ASPIRIN [Concomitant]
  3. BENDROFLUMETHIAZIDE [Concomitant]
  4. CRESTOR [Concomitant]
  5. LISINOPRIL [Concomitant]
  6. OMACOR [Concomitant]
  7. VITAMIN B [Concomitant]
  8. VITAMIN C [Concomitant]
  9. ATORVASTATIN [Concomitant]

REACTIONS (3)
  - Cerebrovascular accident [Unknown]
  - Weight increased [Recovering/Resolving]
  - Withdrawal syndrome [Unknown]
